FAERS Safety Report 6283765-6 (Version None)
Quarter: 2009Q3

REPORT INFORMATION
  Report Type: 
  Country: None (occurrence: None)
  Receive Date: 20090724
  Receipt Date: 20070601
  Transmission Date: 20100115
  Serious: Yes (Other)
  Sender: FDA-Public Use
  Company Number: US-ASTRAZENECA-2006UW22691

PATIENT
  Age: 15749 Day
  Sex: Male
  Weight: 88.5 kg

DRUGS (18)
  1. SEROQUEL [Suspect]
     Indication: DEPRESSION
     Dosage: 100 MG - 300 MG
     Route: 048
     Dates: start: 19990223
  2. SEROQUEL [Suspect]
     Indication: INSOMNIA
     Dosage: 100 MG - 300 MG
     Route: 048
     Dates: start: 19990223
  3. CRESTOR [Concomitant]
  4. ZOLOFT [Concomitant]
  5. PAXIL [Concomitant]
  6. AVINZA [Concomitant]
  7. AVANDAMET [Concomitant]
  8. LOTREL [Concomitant]
  9. ZETIA [Concomitant]
  10. XANAX [Concomitant]
  11. REMERON [Concomitant]
  12. TYLENOL [Concomitant]
  13. AMBIEN [Concomitant]
  14. PHENERGAN [Concomitant]
  15. PROTONIX [Concomitant]
  16. TRAZODONE [Concomitant]
  17. RESTORIL [Concomitant]
  18. ELAVIL [Concomitant]

REACTIONS (3)
  - DIABETES MELLITUS [None]
  - DIABETIC NEUROPATHY [None]
  - TYPE 2 DIABETES MELLITUS [None]
